FAERS Safety Report 15118917 (Version 2)
Quarter: 2018Q3

REPORT INFORMATION
  Report Type: Spontaneous
  Country: DE (occurrence: DE)
  Receive Date: 20180706
  Receipt Date: 20180706
  Transmission Date: 20181010
  Serious: Yes (Life-Threatening, Hospitalization, Disabling, Other)
  Sender: FDA-Public Use
  Company Number: DE-CONCORDIA PHARMACEUTICALS INC.-E2B_00013314

PATIENT
  Age: 64 Year
  Sex: Male

DRUGS (4)
  1. PREDNISOLONE. [Suspect]
     Active Substance: PREDNISOLONE
     Indication: ARTHRITIS BACTERIAL
     Dosage: DAILY DOSE: 10 MG MILLGRAM(S) EVERY DAYS
     Dates: start: 201504, end: 201702
  2. ASS 100 [Concomitant]
     Active Substance: ASPIRIN
  3. REVOLADE [Concomitant]
     Active Substance: ELTROMBOPAG
     Indication: IMMUNE THROMBOCYTOPENIC PURPURA
  4. HUMIRA [Suspect]
     Active Substance: ADALIMUMAB
     Indication: ARTHRITIS BACTERIAL
     Dosage: DAILY DOSE: 40 MG MILLGRAM(S) EVERY 14 DAYS
     Dates: start: 201503, end: 201601

REACTIONS (3)
  - Arthritis bacterial [Not Recovered/Not Resolved]
  - Intervertebral discitis [Not Recovered/Not Resolved]
  - Pseudomonas infection [Not Recovered/Not Resolved]

NARRATIVE: CASE EVENT DATE: 201601
